FAERS Safety Report 7393795-9 (Version None)
Quarter: 2011Q2

REPORT INFORMATION
  Report Type: 
  Country: None (occurrence: None)
  Receive Date: 20110405
  Receipt Date: 20110324
  Transmission Date: 20111010
  Serious: Yes (Hospitalization)
  Sender: FDA-Public Use
  Company Number: US-ELI_LILLY_AND_COMPANY-US201103007183

PATIENT
  Sex: Female

DRUGS (5)
  1. ZYPREXA [Suspect]
     Dosage: UNK, UNKNOWN
  2. NORVASC [Concomitant]
  3. ZYPREXA [Suspect]
     Dosage: 10 MG, TID
     Dates: start: 20110204
  4. LITHIUM [Concomitant]
  5. VASOTEC [Concomitant]

REACTIONS (4)
  - PARKINSONISM [None]
  - GAIT DISTURBANCE [None]
  - SPEECH DISORDER [None]
  - TRANSIENT ISCHAEMIC ATTACK [None]
